FAERS Safety Report 5447252-7 (Version None)
Quarter: 2007Q3

REPORT INFORMATION
  Report Type: 
  Country: None (occurrence: None)
  Receive Date: 20070910
  Receipt Date: 20070830
  Transmission Date: 20080115
  Serious: Yes (Hospitalization)
  Sender: FDA-Public Use
  Company Number: US-BAYER-200715043GDS

PATIENT
  Age: 32 Year
  Sex: Female

DRUGS (2)
  1. CALCIUM CARBONATE [Suspect]
     Indication: DRUG USE FOR UNKNOWN INDICATION
     Route: 048
  2. PRE-NATAL VITAMINS (CONTAINING 250 MG OF CALCIUM CARBONATE) [Suspect]
     Indication: DRUG USE FOR UNKNOWN INDICATION
     Route: 048

REACTIONS (10)
  - AZOTAEMIA [None]
  - CONSTIPATION [None]
  - HEADACHE [None]
  - HYPERCALCAEMIA [None]
  - HYPERTENSION [None]
  - MILK-ALKALI SYNDROME [None]
  - POLLAKIURIA [None]
  - PRE-ECLAMPSIA [None]
  - PROTEINURIA [None]
  - VISION BLURRED [None]
